FAERS Safety Report 24613973 (Version 2)
Quarter: 2024Q4

REPORT INFORMATION
  Report Type: Spontaneous
  Country: FR (occurrence: FR)
  Receive Date: 20241113
  Receipt Date: 20241125
  Transmission Date: 20250115
  Serious: Yes (Other)
  Sender: ASTELLAS
  Company Number: None

PATIENT
  Age: 55 Year
  Sex: Male
  Weight: 75 kg

DRUGS (2)
  1. PADCEV [Suspect]
     Active Substance: ENFORTUMAB VEDOTIN\ENFORTUMAB VEDOTIN-EJFV
     Indication: Bladder transitional cell carcinoma
     Dosage: 1.25 MG/KG THEN REDUCTION TO 1 MG/KG
     Route: 042
     Dates: start: 20230221, end: 20240422
  2. PADCEV [Suspect]
     Active Substance: ENFORTUMAB VEDOTIN\ENFORTUMAB VEDOTIN-EJFV
     Route: 042

REACTIONS (12)
  - Neuropathy peripheral [Recovered/Resolved]
  - Vessel puncture site inflammation [Recovered/Resolved]
  - Back pain [Recovered/Resolved]
  - Gastrointestinal motility disorder [Recovered/Resolved]
  - Abdominal pain upper [Recovered/Resolved]
  - Hypersensitivity [Recovered/Resolved]
  - Asthenia [Recovered/Resolved]
  - Alopecia [Recovered/Resolved]
  - Skin toxicity [Recovered/Resolved]
  - Arthralgia [Recovered/Resolved]
  - Oedema peripheral [Recovered/Resolved]
  - Diarrhoea [Recovered/Resolved]

NARRATIVE: CASE EVENT DATE: 20230201
